FAERS Safety Report 8595512-3 (Version None)
Quarter: 2012Q3

REPORT INFORMATION
  Report Type: 
  Country: None (occurrence: None)
  Receive Date: 20120815
  Receipt Date: 20120801
  Transmission Date: 20120928
  Serious: No
  Sender: FDA-Public Use
  Company Number: US-BAYER-2012-079311

PATIENT

DRUGS (4)
  1. TRAMADOL HCL [Concomitant]
  2. ABSORBINE JR [Concomitant]
  3. ALEVE (CAPLET) [Suspect]
     Indication: ANALGESIC THERAPY
     Route: 048
  4. IBUPROFEN [Concomitant]

REACTIONS (2)
  - INSOMNIA [None]
  - PAIN [None]
